FAERS Safety Report 10332008 (Version 2)
Quarter: 2014Q1

REPORT INFORMATION
  Report Type: Spontaneous
  Country: US (occurrence: None)
  Receive Date: 20120817
  Receipt Date: 20130813
  Transmission Date: 20141002
  Serious: Yes (Other)
  Sender: FDA-Public Use
  Company Number: ADR-2011-11621

PATIENT
  Age: 50 Year
  Sex: Male

DRUGS (2)
  1. LIORESAL INTRATHECAL(BACLOFEN INJECTION)500MCG/ML [Suspect]
     Indication: SPINAL CORD INJURY
     Dosage: SEE B5
  2. LIORESAL INTRATHECAL(BACLOFEN INJECTION)500MCG/ML [Suspect]
     Dosage: SEE B5

REACTIONS (2)
  - Postoperative fever [None]
  - Post procedural infection [None]
